FAERS Safety Report 14614858 (Version 10)
Quarter: 2018Q3

REPORT INFORMATION
  Report Type: Spontaneous
  Country: IE (occurrence: IE)
  Receive Date: 20180308
  Receipt Date: 20180803
  Transmission Date: 20181010
  Serious: Yes (Life-Threatening, Hospitalization, Other)
  Sender: FDA-Public Use
  Company Number: IE-PFIZER INC-2018094054

PATIENT
  Age: 57 Year
  Sex: Female

DRUGS (1)
  1. NEURONTIN [Suspect]
     Active Substance: GABAPENTIN
     Dosage: 600 MG, UNK

REACTIONS (14)
  - Chest discomfort [Unknown]
  - Dyspnoea [Unknown]
  - Rash generalised [Unknown]
  - Frustration tolerance decreased [Unknown]
  - Product label issue [Unknown]
  - Hypoaesthesia [Unknown]
  - Throat tightness [Unknown]
  - Swollen tongue [Unknown]
  - Peripheral swelling [Unknown]
  - Product use complaint [Unknown]
  - Anaphylactic shock [Unknown]
  - Paraesthesia [Unknown]
  - Sensation of foreign body [Unknown]
  - Swelling face [Unknown]

NARRATIVE: CASE EVENT DATE: 201802
